FAERS Safety Report 25478378 (Version 1)
Quarter: 2025Q2

REPORT INFORMATION
  Report Type: Spontaneous
  Country: US (occurrence: None)
  Receive Date: 20250625
  Receipt Date: 20250625
  Transmission Date: 20250716
  Serious: Yes (Death, Other)
  Sender: INCYTE
  Company Number: US-INCYTE CORPORATION-2025IN006867

PATIENT
  Age: 74 Year
  Weight: 87.528 kg

DRUGS (1)
  1. JAKAFI [Suspect]
     Active Substance: RUXOLITINIB
     Indication: Graft versus host disease
     Dosage: 5 MILLIGRAM, BID (IN THE MORNING AND IN THE EVENING)
     Route: 065

REACTIONS (1)
  - Death [Fatal]
